FAERS Safety Report 10032305 (Version 1)
Quarter: 2014Q1

REPORT INFORMATION
  Report Type: Spontaneous
  Country: FR (occurrence: FR)
  Receive Date: 20140324
  Receipt Date: 20140324
  Transmission Date: 20141002
  Serious: Yes (Hospitalization)
  Sender: FDA-Public Use
  Company Number: FR-PFIZER INC-2014077692

PATIENT
  Age: 15 Year
  Sex: Female

DRUGS (1)
  1. TYGACIL [Suspect]
     Indication: CYSTIC FIBROSIS
     Dosage: UNK
     Dates: start: 201305

REACTIONS (2)
  - Respiratory disorder [Unknown]
  - Neurological decompensation [Unknown]
